FAERS Safety Report 8591574-8 (Version None)
Quarter: 2012Q3

REPORT INFORMATION
  Report Type: 
  Country: None (occurrence: None)
  Receive Date: 20120801
  Receipt Date: 20120716
  Transmission Date: 20120928
  Serious: Yes (Other)
  Sender: FDA-Public Use
  Company Number: 2012MA008929

PATIENT
  Sex: Male

DRUGS (1)
  1. FEVERALL [Suspect]
     Indication: PRODUCT USED FOR UNKNOWN INDICATION
     Dosage: 80 MG;RTL
     Route: 054

REACTIONS (3)
  - PAIN [None]
  - DRUG HYPERSENSITIVITY [None]
  - SCREAMING [None]
